FAERS Safety Report 14410019 (Version 1)
Quarter: 2018Q1

REPORT INFORMATION
  Report Type: Spontaneous
  Country: US (occurrence: US)
  Receive Date: 20180119
  Receipt Date: 20180119
  Transmission Date: 20180509
  Serious: No
  Sender: FDA-Public Use
  Company Number: US-PFIZER INC-2017020617

PATIENT
  Age: 55 Year
  Sex: Male

DRUGS (1)
  1. SOMAVERT [Suspect]
     Active Substance: PEGVISOMANT
     Dosage: UNK
     Dates: start: 20150501

REACTIONS (6)
  - Arthritis [Unknown]
  - Depression [Unknown]
  - Myalgia [Unknown]
  - Memory impairment [Unknown]
  - Arthralgia [Unknown]
  - Fatigue [Unknown]
